FAERS Safety Report 13901461 (Version 3)
Quarter: 2017Q4

REPORT INFORMATION
  Report Type: Spontaneous
  Country: GB (occurrence: GB)
  Receive Date: 20170824
  Receipt Date: 20171011
  Transmission Date: 20180320
  Serious: Yes (Other)
  Sender: FDA-Public Use
  Company Number: GB-SUN PHARMACEUTICAL INDUSTRIES LTD-2017RR-148335

PATIENT
  Age: 33 Year
  Sex: Female

DRUGS (5)
  1. PREDNISOLONE. [Suspect]
     Active Substance: PREDNISOLONE
     Indication: PRODUCT USED FOR UNKNOWN INDICATION
     Dosage: DRUG TAKEN BY PARTNER ORALLY
     Route: 050
  2. IPILIMUMAB [Suspect]
     Active Substance: IPILIMUMAB
     Indication: PRODUCT USED FOR UNKNOWN INDICATION
     Dosage: DRUG TAKEN BY PARTNER- DRUG TAKEN THROUGH INTRAVENOUS ROUTE
     Route: 050
     Dates: start: 20170330
  3. CETIRIZINE [Suspect]
     Active Substance: CETIRIZINE HYDROCHLORIDE
     Indication: PRODUCT USED FOR UNKNOWN INDICATION
     Dosage: DRUG TAKEN BY PARTNER ORALLY
     Route: 050
  4. NIVOLUMAB [Suspect]
     Active Substance: NIVOLUMAB
     Indication: PRODUCT USED FOR UNKNOWN INDICATION
     Dosage: DRUG TAKEN BY MALE PARTNER. MALE PARTNER RECEIVED NIVOLUMAB MONOTHERAPY: 29-JUN-2017 AND 13-JUL-2017
     Route: 050
     Dates: start: 20170330
  5. RANITIDINE. [Suspect]
     Active Substance: RANITIDINE
     Indication: PRODUCT USED FOR UNKNOWN INDICATION
     Dosage: DRUG TAKEN BY PARTNER ORALLY
     Route: 050

REACTIONS (2)
  - Pregnancy on contraceptive [Unknown]
  - Exposure via body fluid [Unknown]

NARRATIVE: CASE EVENT DATE: 201706
